FAERS Safety Report 9515009 (Version 3)
Quarter: 2013Q3

REPORT INFORMATION
  Report Type: Report from Study
  Country: BE (occurrence: BE)
  Receive Date: 20130911
  Receipt Date: 20130916
  Transmission Date: 20140515
  Serious: Yes (Other)
  Sender: FDA-Public Use
  Company Number: BE-BAYER-2013-105196

PATIENT
  Age: 71 Year
  Sex: Male

DRUGS (18)
  1. NEXAVAR [Suspect]
     Indication: HEPATOCELLULAR CARCINOMA
     Dosage: DAILY DOSE: 800 MG
     Route: 048
     Dates: start: 20130826
  2. NEXAVAR [Suspect]
     Indication: HEPATOCELLULAR CARCINOMA
     Dosage: 400 MG, DAILY
     Route: 048
     Dates: end: 20130902
  3. ASAFLOW [Concomitant]
     Dosage: 80 MG, UNK
  4. BEFACT [CYANOCOBALAMIN,PYRIDOXINE HYDROCHLORIDE,RIBOFLAVIN,THIAMIN [Concomitant]
  5. PROMAGNOR [Concomitant]
     Dosage: 450 MG, UNK
  6. BIFITERAL [Concomitant]
     Dosage: 500 ML, UNK
  7. NOBITEN [Concomitant]
     Dosage: 5 MG, UNK
  8. BURINEX [Concomitant]
     Dosage: 1 MG, UNK
  9. ZYLORIC [Concomitant]
     Dosage: 300 MG, UNK
  10. ZOCOR [Concomitant]
     Dosage: 40 MG, UNK
  11. CIRCADIN [Concomitant]
     Dosage: 2 MG, UNK
  12. APIDRA [Concomitant]
     Dosage: 10U-6U-10U
  13. APIDRA [Concomitant]
     Dosage: 6U
  14. APIDRA [Concomitant]
     Dosage: 10U
  15. LANTUS [Concomitant]
     Dosage: 18U
  16. D-CURE [Concomitant]
     Dosage: 1XPER MONTH
  17. REDOMEX [Concomitant]
  18. EXACYL [Concomitant]
     Indication: EPISTAXIS
     Dosage: UNK

REACTIONS (7)
  - Hepatocellular carcinoma [Not Recovered/Not Resolved]
  - Terminal state [None]
  - Palmar-plantar erythrodysaesthesia syndrome [None]
  - Fatigue [None]
  - Confusional state [None]
  - Diarrhoea [None]
  - Urinary incontinence [None]
